FAERS Safety Report 8341350-6 (Version None)
Quarter: 2012Q2

REPORT INFORMATION
  Report Type: 
  Country: None (occurrence: None)
  Receive Date: 20120507
  Receipt Date: 20120426
  Transmission Date: 20120825
  Serious: Yes (Hospitalization)
  Sender: FDA-Public Use
  Company Number: US-JNJFOC-20110411724

PATIENT
  Sex: Female
  Weight: 59.7 kg

DRUGS (15)
  1. ANTIHISTAMINES [Concomitant]
     Indication: PREMEDICATION
  2. REMICADE [Suspect]
     Indication: PSORIASIS
     Route: 042
     Dates: start: 20050201
  3. CIPROFLOXACIN [Concomitant]
     Route: 065
  4. WELCHOL [Concomitant]
     Dosage: 625
     Route: 065
  5. FOLIC ACID [Concomitant]
     Dosage: DOSE:400MCG
  6. LISINOPRIL [Concomitant]
     Route: 065
  7. VITAMIN D [Concomitant]
     Dosage: DOSE:400 UNITS
     Route: 065
  8. MOBIC [Concomitant]
     Route: 065
  9. ACETAMINOPHEN [Concomitant]
     Indication: PREMEDICATION
  10. CORTICOSTEROIDS [Concomitant]
  11. PHENAZOPYRIDINE HCL TAB [Concomitant]
     Route: 065
  12. METHOTREXATE [Suspect]
     Indication: PSORIASIS
     Route: 065
     Dates: start: 20010101
  13. VITAMIN D [Concomitant]
     Dosage: DOSE:50,000 UNITS EVERY MONTH
     Route: 065
  14. SIMVASTATIN [Concomitant]
     Route: 065
  15. TACLONEX [Concomitant]

REACTIONS (4)
  - DIVERTICULITIS [None]
  - DEHYDRATION [None]
  - PANCYTOPENIA [None]
  - RENAL FAILURE ACUTE [None]
